FAERS Safety Report 7659239-4 (Version None)
Quarter: 2011Q3

REPORT INFORMATION
  Report Type: 
  Country: None (occurrence: None)
  Receive Date: 20110805
  Receipt Date: 20110725
  Transmission Date: 20111222
  Serious: Yes (Other)
  Sender: FDA-Public Use
  Company Number: US-ROCHE-752042

PATIENT
  Sex: Male
  Weight: 79.4 kg

DRUGS (4)
  1. ACCUTANE [Suspect]
     Indication: ACNE
     Route: 065
     Dates: start: 19960901
  2. ACCUTANE [Suspect]
     Route: 065
     Dates: start: 20000801, end: 20010801
  3. ACCUTANE [Suspect]
     Route: 065
     Dates: start: 19980201, end: 19990701
  4. ACCUTANE [Suspect]
     Route: 065
     Dates: start: 20060301, end: 20070101

REACTIONS (6)
  - HAEMORRHOIDS [None]
  - COLITIS ULCERATIVE [None]
  - IRRITABLE BOWEL SYNDROME [None]
  - INFLAMMATORY BOWEL DISEASE [None]
  - COLONIC POLYP [None]
  - GASTROINTESTINAL INJURY [None]
